FAERS Safety Report 4975841-2 (Version None)
Quarter: 2006Q2

REPORT INFORMATION
  Report Type: 
  Country: None (occurrence: None)
  Receive Date: 20060411
  Receipt Date: 20060329
  Transmission Date: 20061013
  Serious: Yes (Disabling)
  Sender: FDA-Public Use
  Company Number: 06H-114-0306954-00

PATIENT
  Age: 21 Year
  Sex: Female

DRUGS (13)
  1. ETOPOSIDE [Suspect]
     Indication: MEDULLOBLASTOMA
     Dosage: DAILY
  2. ETOPOSIDE [Suspect]
     Indication: NEOPLASM RECURRENCE
     Dosage: DAILY
  3. CARBOPLATIN [Suspect]
     Indication: MEDULLOBLASTOMA
     Dosage: DAILY
  4. CARBOPLATIN [Suspect]
     Indication: NEOPLASM RECURRENCE
     Dosage: DAILY
  5. THIOTEPA [Suspect]
     Indication: MEDULLOBLASTOMA
     Dosage: DAILY
  6. THIOTEPA [Suspect]
     Indication: NEOPLASM RECURRENCE
     Dosage: DAILY
  7. CYCLOPHOSPHAMIDE [Concomitant]
  8. MESNA [Concomitant]
  9. GRANULOCYTE COLONY STIMULATING FACTOR (G-CSF) (GRANULOCYTE COLONY STIM [Concomitant]
  10. ANTIBIOTICS (ANTIBIOTICS) [Concomitant]
  11. TPN [Concomitant]
  12. ANTI-VIRAL (ANTIVIRALS FOR SYSTEMIC USE) [Concomitant]
  13. ANTI-FUNGAL (ANTIFUNGALS) [Concomitant]

REACTIONS (7)
  - ANXIETY [None]
  - BRADYPHRENIA [None]
  - CREATININE RENAL CLEARANCE DECREASED [None]
  - DRUG TOXICITY [None]
  - DYSPHAGIA [None]
  - ENCEPHALOPATHY [None]
  - HYPERTONIA [None]
